FAERS Safety Report 9223605 (Version 1)
Quarter: 2013Q2

REPORT INFORMATION
  Report Type: Spontaneous
  Country: FR (occurrence: FR)
  Receive Date: 20130410
  Receipt Date: 20130410
  Transmission Date: 20140414
  Serious: Yes (Life-Threatening, Hospitalization)
  Sender: FDA-Public Use
  Company Number: PHHY2013FR030666

PATIENT
  Age: 40 Year
  Sex: Male

DRUGS (5)
  1. VOLTARENE [Suspect]
     Dosage: 50 MG, QD
     Route: 048
     Dates: start: 20121017, end: 20121017
  2. MOPRAL [Suspect]
     Dosage: 20 MG, QD
     Route: 048
     Dates: start: 20121017, end: 20121017
  3. DOLIPRANE [Concomitant]
     Dosage: 500 MG, UNK
  4. STILNOX [Concomitant]
     Dosage: 10 MG, UNK
  5. DEROXAT [Concomitant]

REACTIONS (6)
  - Dysphagia [Recovered/Resolved]
  - Angioedema [Recovered/Resolved]
  - Urticaria [Recovered/Resolved]
  - Pruritus [Recovered/Resolved]
  - Respiratory distress [Recovered/Resolved]
  - Hypotension [Recovered/Resolved]
